FAERS Safety Report 9895266 (Version 1)
Quarter: 2014Q1

REPORT INFORMATION
  Report Type: Spontaneous
  Country: US (occurrence: US)
  Receive Date: 20140213
  Receipt Date: 20140213
  Transmission Date: 20141002
  Serious: No
  Sender: FDA-Public Use
  Company Number: US-BRISTOL-MYERS SQUIBB COMPANY-17273772

PATIENT
  Age: 61 Year
  Sex: Female
  Weight: 95.69 kg

DRUGS (6)
  1. ABATACEPT SUBQ INJECTION 125MG/ML [Suspect]
     Indication: RHEUMATOID ARTHRITIS
     Dosage: STRENGTH:125MG/ML
     Route: 058
     Dates: start: 20120210
  2. ATORVASTATIN [Concomitant]
  3. DIOVAN [Concomitant]
  4. FOLIC ACID [Concomitant]
  5. LEFLUNOMIDE [Concomitant]
  6. PRILOSEC [Concomitant]

REACTIONS (1)
  - Influenza [Recovered/Resolved]
